FAERS Safety Report 15219310 (Version 1)
Quarter: 2018Q3

REPORT INFORMATION
  Report Type: Spontaneous
  Country: US (occurrence: US)
  Receive Date: 20180731
  Receipt Date: 20180731
  Transmission Date: 20181010
  Serious: No
  Sender: FDA-Public Use
  Company Number: US-EMMAUS MEDICAL, INC.-EMM201804-000046

PATIENT
  Age: 34 Year

DRUGS (2)
  1. ENDARI [Suspect]
     Active Substance: GLUTAMINE
     Route: 048
     Dates: start: 20180308
  2. ENDARI [Suspect]
     Active Substance: GLUTAMINE
     Indication: SICKLE CELL DISEASE
     Route: 048
     Dates: start: 20180308

REACTIONS (5)
  - Nausea [None]
  - Gastrooesophageal reflux disease [Recovered/Resolved]
  - Photophobia [Recovered/Resolved]
  - Constipation [None]
  - Sensation of foreign body [None]

NARRATIVE: CASE EVENT DATE: 20180312
